FAERS Safety Report 17146174 (Version 1)
Quarter: 2019Q4

REPORT INFORMATION
  Report Type: Spontaneous
  Country: NL (occurrence: SE)
  Receive Date: 20191212
  Receipt Date: 20191212
  Transmission Date: 20200122
  Serious: Yes (Hospitalization)
  Sender: FDA-Public Use
  Company Number: SE-BAYER-2019-219812

PATIENT
  Sex: Female

DRUGS (11)
  1. LORATADINE. [Suspect]
     Active Substance: LORATADINE
     Dosage: 1 DF, QD
     Route: 048
     Dates: start: 20181120, end: 20181120
  2. CITALOPRAM [Suspect]
     Active Substance: CITALOPRAM HYDROBROMIDE
     Dosage: 1 DF, QD
     Route: 048
     Dates: start: 20181120, end: 20181120
  3. TRUXAL [CHLORPROTHIXENE HYDROCHLORIDE] [Suspect]
     Active Substance: CHLORPROTHIXENE
     Dosage: 1 DF, QD
     Route: 048
     Dates: start: 20181120, end: 20181120
  4. DUROFERON [Suspect]
     Active Substance: FERROUS SULFATE
     Dosage: 1 DF, QD
     Dates: start: 20181120, end: 20181120
  5. LEVAXIN [Suspect]
     Active Substance: LEVOTHYROXINE SODIUM
     Dosage: 1 DF, QD
     Dates: start: 20181120, end: 20181120
  6. PROMETHAZINE HYDROCHLORIDE. [Suspect]
     Active Substance: PROMETHAZINE HYDROCHLORIDE
     Dosage: 1 DF, QD
     Route: 048
     Dates: start: 20181120, end: 20181120
  7. PROPAVAN [Suspect]
     Active Substance: PROPIOMAZINE
     Dosage: 1 DF, QD
     Route: 048
     Dates: start: 20181120, end: 20181120
  8. ABILIFY [Suspect]
     Active Substance: ARIPIPRAZOLE
     Dosage: 1 DF, QD
     Route: 048
     Dates: start: 20181120, end: 20181120
  9. ZOPICLONE [Suspect]
     Active Substance: ZOPICLONE
     Dosage: 1 DF, QD
     Route: 048
     Dates: start: 20181120, end: 20181120
  10. PARAFLEX [Suspect]
     Active Substance: CHLORZOXAZONE
     Dosage: 1 DF, QD
     Route: 048
     Dates: start: 20181120, end: 20181120
  11. KALCIPOS [Suspect]
     Active Substance: CALCIUM CARBONATE
     Dosage: 1 DF, QD
     Dates: start: 20181120, end: 20181120

REACTIONS (6)
  - Depressed level of consciousness [Unknown]
  - Intentional self-injury [Unknown]
  - Respiratory acidosis [Unknown]
  - Intentional overdose [Unknown]
  - Metabolic acidosis [Unknown]
  - Lethargy [Unknown]

NARRATIVE: CASE EVENT DATE: 20181120
